FAERS Safety Report 6264990-7 (Version None)
Quarter: 2009Q3

REPORT INFORMATION
  Report Type: 
  Country: None (occurrence: None)
  Receive Date: 20090709
  Receipt Date: 20090709
  Transmission Date: 20100115
  Serious: No
  Sender: FDA-Public Use
  Company Number: None

PATIENT
  Age: 66 Year
  Sex: Female
  Weight: 78.9259 kg

DRUGS (2)
  1. BENICAR HCT [Suspect]
     Indication: HYPERTENSION
     Dosage: 40/25 1XDAILY
     Dates: start: 20081001, end: 20090501
  2. ATENOLOL [Suspect]
     Indication: HYPERTENSION
     Dosage: 50MG 1XDAILY
     Dates: start: 20090201, end: 20090501

REACTIONS (7)
  - CHEST PAIN [None]
  - DRY EYE [None]
  - GAIT DISTURBANCE [None]
  - MUSCULAR WEAKNESS [None]
  - MYALGIA [None]
  - OEDEMA PERIPHERAL [None]
  - SKIN DISCOLOURATION [None]
